FAERS Safety Report 6857940-3 (Version None)
Quarter: 2010Q3

REPORT INFORMATION
  Report Type: 
  Country: None (occurrence: None)
  Receive Date: 20100715
  Receipt Date: 20100702
  Transmission Date: 20110219
  Serious: Yes (Hospitalization)
  Sender: FDA-Public Use
  Company Number: 7010039

PATIENT
  Age: 51 Year
  Sex: Female

DRUGS (1)
  1. REBIF [Suspect]
     Indication: PRODUCT USED FOR UNKNOWN INDICATION
     Dosage: 44 MCG, 3 IN 1 WK, SUBCUTANEOUS
     Route: 058
     Dates: start: 20100210

REACTIONS (7)
  - CARDIAC DISORDER [None]
  - FATIGUE [None]
  - MUSCULAR WEAKNESS [None]
  - OPTIC NEURITIS [None]
  - PROTEIN URINE PRESENT [None]
  - TACHYCARDIA [None]
  - URINARY RETENTION [None]
